FAERS Safety Report 11370504 (Version 1)
Quarter: 2015Q3

REPORT INFORMATION
  Report Type: Spontaneous
  Country: BR (occurrence: BR)
  Receive Date: 20150812
  Receipt Date: 20150812
  Transmission Date: 20151125
  Serious: Yes (Hospitalization)
  Sender: FDA-Public Use
  Company Number: BR-PFIZER INC-2015262642

PATIENT
  Age: 89 Year
  Sex: Female
  Weight: 64.75 kg

DRUGS (9)
  1. ALDACTONE [Suspect]
     Active Substance: SPIRONOLACTONE
     Dosage: 1 TABLET (50MG), DAILY
  2. ELIQUIS [Concomitant]
     Active Substance: APIXABAN
     Indication: THROMBOSIS
     Dosage: 2 TABLETS (UNSPECIFIED DOSE), DAILY
     Dates: start: 2012
  3. VEDILOL [Concomitant]
     Indication: CARDIAC DISORDER
     Dosage: ONE TABLET (3.125, UNSPECIFIED UNIT), 2X/DAY (EVERY 12 HOURS) CONTINUOUS USE
     Dates: start: 201505
  4. VIAGRA [Suspect]
     Active Substance: SILDENAFIL CITRATE
     Indication: FIBROSIS
  5. VIAGRA [Suspect]
     Active Substance: SILDENAFIL CITRATE
     Indication: CARDIAC DISORDER
     Dosage: ONE TABLET (25 MG), DAILY, CONTINUOUS USE
     Route: 048
     Dates: start: 201504
  6. VIAGRA [Suspect]
     Active Substance: SILDENAFIL CITRATE
     Indication: LUNG DISORDER
  7. RIVOTRIL [Concomitant]
     Active Substance: CLONAZEPAM
     Indication: ANXIETY
     Dosage: 5 DROPS PER DAY BEFORE SLEEPING
     Dates: start: 2012
  8. CLAVULIN BD [Concomitant]
     Active Substance: AMOXICILLIN\CLAVULANATE POTASSIUM
     Indication: URINARY TRACT INFECTION
     Dosage: UNK
     Dates: start: 2012
  9. REMERON [Concomitant]
     Active Substance: MIRTAZAPINE
     Indication: ANTIDEPRESSANT THERAPY
     Dosage: ONE TABLET (UNSPECIFIED DOSE) PER DAY, CONTINUOUS USE
     Dates: start: 2012

REACTIONS (2)
  - Infection [Unknown]
  - Product use issue [Unknown]
